FAERS Safety Report 6614450-6 (Version None)
Quarter: 2010Q1

REPORT INFORMATION
  Report Type: 
  Country: None (occurrence: None)
  Receive Date: 20100304
  Receipt Date: 20100222
  Transmission Date: 20100710
  Serious: Yes (Other)
  Sender: FDA-Public Use
  Company Number: BR-ABBOTT-09P-020-0591447-00

PATIENT
  Sex: Female
  Weight: 53 kg

DRUGS (4)
  1. HUMIRA [Suspect]
     Indication: CROHN'S DISEASE
     Dosage: INDUCTION DOSE: 160MG, THEN 80MG 14 DAYS LATER, THEN 40 MG 1 IN 14 DAYS
     Dates: start: 20080201
  2. AZATHIOPRINE [Concomitant]
     Indication: FISTULA
     Route: 048
  3. CIPROFLOXACIN [Concomitant]
     Indication: FISTULA
     Route: 048
  4. METRONIDAZOLE [Concomitant]
     Indication: FISTULA
     Route: 048
     Dates: end: 20091101

REACTIONS (7)
  - ABDOMINAL PAIN UPPER [None]
  - CROHN'S DISEASE [None]
  - DEPRESSION [None]
  - DIARRHOEA [None]
  - DRUG INEFFECTIVE [None]
  - INFLAMMATION [None]
  - INJECTION SITE PAIN [None]
